FAERS Safety Report 12862087 (Version 1)
Quarter: 2016Q4

REPORT INFORMATION
  Report Type: Spontaneous
  Country: US (occurrence: US)
  Receive Date: 20161019
  Receipt Date: 20161019
  Transmission Date: 20170207
  Serious: No
  Sender: FDA-Public Use
  Company Number: US-GLAXOSMITHKLINE-US2016152536

PATIENT
  Sex: Female

DRUGS (1)
  1. FLOVENT DISKUS [Suspect]
     Active Substance: FLUTICASONE PROPIONATE
     Indication: IMMUNODEFICIENCY
     Dosage: 2 PUFF(S), BID
     Route: 055
     Dates: start: 2016

REACTIONS (4)
  - Product use issue [Unknown]
  - Device use error [Unknown]
  - Product cleaning inadequate [Unknown]
  - Wrong technique in product usage process [Unknown]
